FAERS Safety Report 11397336 (Version 1)
Quarter: 2015Q3

REPORT INFORMATION
  Report Type: Spontaneous
  Country: US (occurrence: US)
  Receive Date: 20150819
  Receipt Date: 20150819
  Transmission Date: 20151125
  Serious: No
  Sender: FDA-Public Use
  Company Number: US-MALLINCKRODT-T201403953

PATIENT
  Sex: Female

DRUGS (1)
  1. CYSTO-CONRAY II [Suspect]
     Active Substance: IOTHALAMATE MEGLUMINE
     Indication: CYSTOGRAM
     Dosage: 250 ML, SINGLE
     Route: 065
     Dates: start: 20141029, end: 20141029

REACTIONS (2)
  - No adverse event [Unknown]
  - Expired product administered [Unknown]

NARRATIVE: CASE EVENT DATE: 20141029
